FAERS Safety Report 4431135-5 (Version None)
Quarter: 2004Q3

REPORT INFORMATION
  Report Type: 
  Country: None (occurrence: None)
  Receive Date: 20040823
  Receipt Date: 20040823
  Transmission Date: 20050211
  Serious: Yes (Disabling)
  Sender: FDA-Public Use
  Company Number: None

PATIENT
  Age: 33 Year
  Sex: Male
  Weight: 89 kg

DRUGS (4)
  1. PROPOFOL [Suspect]
     Indication: ANAESTHESIA
     Dosage: 13,000 18 HOUR IN INTRAVENOUS
     Route: 042
     Dates: start: 20040615, end: 20040616
  2. NIMBEX [Concomitant]
  3. MIDAZOLAM HCL [Concomitant]
  4. ISOPROTERENOL [Concomitant]

REACTIONS (7)
  - CONFUSIONAL STATE [None]
  - DIALYSIS [None]
  - HALLUCINATION, VISUAL [None]
  - HEPATIC FUNCTION ABNORMAL [None]
  - RENAL FAILURE ACUTE [None]
  - RHABDOMYOLYSIS [None]
  - THROMBOCYTOPENIA [None]
